FAERS Safety Report 5841768-7 (Version None)
Quarter: 2008Q3

REPORT INFORMATION
  Report Type: 
  Country: None (occurrence: None)
  Receive Date: 20080812
  Receipt Date: 20080730
  Transmission Date: 20090109
  Serious: Yes (Other)
  Sender: FDA-Public Use
  Company Number: PHHY2008CA14343

PATIENT
  Sex: Female

DRUGS (8)
  1. RASILEZ [Suspect]
     Dosage: 150 MG ONCE DAILY
     Dates: start: 20080606
  2. RIVOTRIL [Concomitant]
  3. SYNTHROID [Concomitant]
  4. ESCITALOPRAM [Concomitant]
  5. PRAVACHOL [Concomitant]
  6. NORVASC [Concomitant]
  7. FIORINAL-C [Concomitant]
  8. HYDROCHLOROTHIAZIDE [Concomitant]

REACTIONS (1)
  - TINNITUS [None]
